FAERS Safety Report 23029067 (Version 2)
Quarter: 2023Q4

REPORT INFORMATION
  Report Type: Report from Study
  Country: JP (occurrence: JP)
  Receive Date: 20231004
  Receipt Date: 20231012
  Transmission Date: 20240110
  Serious: Yes (Hospitalization, Other)
  Sender: FDA-Public Use
  Company Number: JP-BRISTOL-MYERS SQUIBB COMPANY-BMS-2016-092955

PATIENT
  Age: 71 Year
  Sex: Female
  Weight: 51.6 kg

DRUGS (8)
  1. YERVOY [Suspect]
     Active Substance: IPILIMUMAB
     Indication: Malignant melanoma
     Route: 041
     Dates: start: 20190408, end: 20190408
  2. YERVOY [Suspect]
     Active Substance: IPILIMUMAB
     Route: 041
     Dates: start: 20190430, end: 20190430
  3. YERVOY [Suspect]
     Active Substance: IPILIMUMAB
     Route: 041
     Dates: start: 20190522, end: 20190522
  4. OPDIVO [Suspect]
     Active Substance: NIVOLUMAB
     Indication: Malignant melanoma
     Dates: start: 20160513, end: 20160513
  5. OPDIVO [Suspect]
     Active Substance: NIVOLUMAB
     Dates: start: 20160603, end: 20160603
  6. OPDIVO [Suspect]
     Active Substance: NIVOLUMAB
     Dates: start: 20160720, end: 20160720
  7. OPDIVO [Suspect]
     Active Substance: NIVOLUMAB
     Dates: start: 20160810, end: 20160810
  8. OPDIVO [Suspect]
     Active Substance: NIVOLUMAB
     Dates: start: 20160330, end: 20160330

REACTIONS (15)
  - Malaise [Recovered/Resolved]
  - Taste disorder [Recovered/Resolved]
  - Decreased appetite [Recovered/Resolved]
  - Epistaxis [Recovered/Resolved]
  - Hypoaesthesia oral [Recovered/Resolved]
  - Pain [Recovered/Resolved]
  - Peripheral sensory neuropathy [Recovered/Resolved]
  - Stomatitis [Recovered/Resolved]
  - Infusion related reaction [Recovering/Resolving]
  - Ear pain [Recovered/Resolved]
  - Head discomfort [Recovered/Resolved]
  - Rash [Recovering/Resolving]
  - Immune-mediated hepatitis [Recovered/Resolved]
  - Keratitis [Recovering/Resolving]
  - Laryngitis [Recovered/Resolved]

NARRATIVE: CASE EVENT DATE: 20160513
